FAERS Safety Report 4478548-3 (Version None)
Quarter: 2004Q4

REPORT INFORMATION
  Report Type: 
  Country: None (occurrence: None)
  Receive Date: 20041018
  Receipt Date: 20041018
  Transmission Date: 20050328
  Serious: No
  Sender: FDA-Public Use
  Company Number: None

PATIENT
  Sex: Male

DRUGS (1)
  1. OMNIPAQUE 350 [Suspect]
     Indication: SCAN WITH CONTRAST
     Dates: start: 20041004, end: 20041004

REACTIONS (2)
  - DRUG HYPERSENSITIVITY [None]
  - URTICARIA [None]
